FAERS Safety Report 23493040 (Version 1)
Quarter: 2024Q1

REPORT INFORMATION
  Report Type: Spontaneous
  Country: US (occurrence: US)
  Receive Date: 20240207
  Receipt Date: 20240207
  Transmission Date: 20240410
  Serious: No
  Sender: FDA-Public Use
  Company Number: US-APOTEX-2024AP000998

PATIENT
  Age: 70 Year
  Sex: Male

DRUGS (3)
  1. BRIMONIDINE [Suspect]
     Active Substance: BRIMONIDINE TARTRATE
     Indication: Glaucoma
     Dosage: UNK
     Route: 065
  2. DORZOLAMIDE [Suspect]
     Active Substance: DORZOLAMIDE
     Indication: Glaucoma
     Dosage: UNK
     Route: 065
  3. NETARSUDIL [Suspect]
     Active Substance: NETARSUDIL
     Indication: Glaucoma
     Dosage: UNK
     Route: 065

REACTIONS (1)
  - Drug intolerance [Unknown]
